FAERS Safety Report 16403243 (Version 2)
Quarter: 2019Q3

REPORT INFORMATION
  Report Type: Report from Study
  Country: JP (occurrence: JP)
  Receive Date: 20190607
  Receipt Date: 20190703
  Transmission Date: 20191004
  Serious: No
  Sender: FDA-Public Use
  Company Number: JP-CELLTRION INC.-2018JP025298

PATIENT

DRUGS (18)
  1. INFLIXIMAB BS FOR I.V. INFUSION100 MG [NK] [Suspect]
     Active Substance: INFLIXIMAB
     Dosage: 250 MG/BODY/DAY
     Route: 042
     Dates: start: 20171101
  2. ZENTACORT [Concomitant]
     Active Substance: BUDESONIDE
     Indication: CROHN^S DISEASE
     Dosage: 3 DF, QD
     Dates: start: 20171101, end: 20171114
  3. PREDONINE [Concomitant]
     Active Substance: PREDNISOLONE
     Indication: CROHN^S DISEASE
     Dosage: 30 MG, QD
     Dates: start: 20180128, end: 20180304
  4. STELARA [Concomitant]
     Active Substance: USTEKINUMAB
     Indication: CROHN^S DISEASE
     Dosage: 26 ML, QD
     Dates: start: 20180131
  5. NERIPROCT [Concomitant]
     Active Substance: DIFLUCORTOLONE VALERATE\LIDOCAINE
     Indication: PROPHYLAXIS
     Dosage: UNK
     Dates: start: 20171122
  6. ZENTACORT [Concomitant]
     Active Substance: BUDESONIDE
     Dosage: 2 DF, QD
     Dates: start: 20171115, end: 20171122
  7. ZENTACORT [Concomitant]
     Active Substance: BUDESONIDE
     Dosage: 1 DF, QD
     Dates: start: 20171123, end: 20171206
  8. REBAMIPIDE [Concomitant]
     Active Substance: REBAMIPIDE
     Indication: GASTRITIS PROPHYLAXIS
     Dosage: 100 MG, QD
     Dates: start: 20180128, end: 20180304
  9. INFLIXIMAB BS FOR I.V. INFUSION100 MG [NK] [Suspect]
     Active Substance: INFLIXIMAB
     Dosage: 520 MG/BODY/DAY
     Route: 042
     Dates: start: 20170426
  10. INFLIXIMAB BS FOR I.V. INFUSION100 MG [NK] [Suspect]
     Active Substance: INFLIXIMAB
     Dosage: 520 MG/BODY/DAY
     Route: 042
     Dates: start: 20170614
  11. INFLIXIMAB BS FOR I.V. INFUSION100 MG [NK] [Suspect]
     Active Substance: INFLIXIMAB
     Dosage: 250 MG/BODY/DAY
     Route: 042
     Dates: start: 20171213, end: 20171213
  12. MAGMITT [Concomitant]
     Active Substance: MAGNESIUM OXIDE
     Indication: CONSTIPATION PROPHYLAXIS
     Dosage: 990 MG, QD
     Dates: start: 20180112, end: 20180126
  13. SALAZOPYRIN [Concomitant]
     Active Substance: SULFASALAZINE
     Indication: CROHN^S DISEASE
     Dosage: 500 MG, QD
     Dates: start: 20180129, end: 20180210
  14. PENTASA [Concomitant]
     Active Substance: MESALAMINE
     Indication: CROHN^S DISEASE
     Dosage: 1 G, QD
     Dates: start: 20180207, end: 20180312
  15. INFLIXIMAB BS FOR I.V. INFUSION100 MG [NK] [Suspect]
     Active Substance: INFLIXIMAB
     Indication: CROHN^S DISEASE
     Dosage: 520 MG/BODY/DAY
     Route: 042
     Dates: start: 20170308
  16. INFLIXIMAB BS FOR I.V. INFUSION100 MG [NK] [Suspect]
     Active Substance: INFLIXIMAB
     Dosage: 250 MG/BODY/DAY
     Route: 042
     Dates: start: 20170920
  17. INFLIXIMAB BS FOR I.V. INFUSION100 MG [NK] [Suspect]
     Active Substance: INFLIXIMAB
     Dosage: 250 MG/BODY/DAY
     Route: 042
     Dates: start: 20170802
  18. PENTASA [Concomitant]
     Active Substance: MESALAMINE
     Indication: CROHN^S DISEASE
     Dosage: 3000 MG, QD
     Dates: start: 20090421

REACTIONS (1)
  - Product use issue [Unknown]
